FAERS Safety Report 13321343 (Version 6)
Quarter: 2021Q1

REPORT INFORMATION
  Report Type: Spontaneous
  Country: US (occurrence: US)
  Receive Date: 20170309
  Receipt Date: 20210306
  Transmission Date: 20210419
  Serious: Yes (Congenital Anomaly, Other)
  Sender: FDA-Public Use
  Company Number: PHEH2017US006505

PATIENT
  Age: 0 Day
  Sex: Male

DRUGS (1)
  1. ZOFRAN [Suspect]
     Active Substance: ONDANSETRON HYDROCHLORIDE
     Indication: FOETAL EXPOSURE DURING PREGNANCY
     Route: 064

REACTIONS (36)
  - Patent ductus arteriosus [Unknown]
  - Limb injury [Unknown]
  - Astigmatism [Unknown]
  - Gait disturbance [Unknown]
  - Gastrooesophageal reflux disease [Unknown]
  - Bicuspid pulmonary valve [Unknown]
  - Cardiac failure congestive [Unknown]
  - Foetal exposure during pregnancy [Unknown]
  - Injury [Unknown]
  - Developmental delay [Unknown]
  - Cardiac murmur [Unknown]
  - Refractive amblyopia [Unknown]
  - Cytogenetic abnormality [Unknown]
  - Neonatal respiratory distress syndrome [Unknown]
  - Premature baby [Unknown]
  - Cough [Unknown]
  - Viral infection [Unknown]
  - Pyrexia [Unknown]
  - Bronchitis [Unknown]
  - Anaemia [Unknown]
  - Pulmonary valve stenosis congenital [Unknown]
  - Mitral valve incompetence [Unknown]
  - Bundle branch block right [Unknown]
  - Acquired hydrocele [Unknown]
  - Arthralgia [Unknown]
  - Rhinitis allergic [Unknown]
  - Ventricular septal defect [Unknown]
  - Micrognathia [Unknown]
  - Left-to-right cardiac shunt [Unknown]
  - Tricuspid valve incompetence [Unknown]
  - Pharyngitis [Unknown]
  - Dilatation ventricular [Unknown]
  - Respiratory syncytial virus infection [Unknown]
  - Atrial septal defect [Unknown]
  - Pulmonary hypertension [Unknown]
  - Skin papilloma [Unknown]

NARRATIVE: CASE EVENT DATE: 20060424
